FAERS Safety Report 13534760 (Version 1)
Quarter: 2017Q2

REPORT INFORMATION
  Report Type: Spontaneous
  Country: AR (occurrence: AR)
  Receive Date: 20170511
  Receipt Date: 20170511
  Transmission Date: 20170830
  Serious: Yes (Hospitalization, Other)
  Sender: FDA-Public Use
  Company Number: AR-AMGEN-ARGSP2017070721

PATIENT
  Age: 67 Year
  Sex: Female

DRUGS (3)
  1. POLIRREUMIN [Concomitant]
     Dosage: UNK
  2. METILPRES [Concomitant]
     Dosage: UNK
  3. ENBREL [Suspect]
     Active Substance: ETANERCEPT
     Indication: RHEUMATOID ARTHRITIS
     Dosage: 50 MG, EVERY 15 DAYS
     Route: 065
     Dates: start: 20111003

REACTIONS (5)
  - Reflux gastritis [Unknown]
  - Abdominal pain upper [Unknown]
  - Urinary tract infection [Unknown]
  - Loss of consciousness [Unknown]
  - Pain [Unknown]

NARRATIVE: CASE EVENT DATE: 2017
